FAERS Safety Report 6702275-2 (Version None)
Quarter: 2010Q2

REPORT INFORMATION
  Report Type: 
  Country: None (occurrence: None)
  Receive Date: 20100429
  Receipt Date: 20100407
  Transmission Date: 20101027
  Serious: Yes (Other)
  Sender: FDA-Public Use
  Company Number: PHHY2010US05406

PATIENT
  Sex: Female

DRUGS (7)
  1. LOPRESSOR [Suspect]
     Dosage: 50 MG
  2. LOPRESSOR [Suspect]
     Dosage: 100 MG
     Dates: start: 20100127
  3. TEKTURNA [Suspect]
     Dosage: 150 MG
     Dates: start: 20090201
  4. TEKTURNA [Suspect]
     Dosage: 300 MG
     Dates: start: 20100127, end: 20100129
  5. LISINOPRIL AND HYDROCHLOROTHIAZIDE [Concomitant]
     Dosage: 25/20 MG
  6. METFORMIN [Concomitant]
     Dosage: 100 MG
  7. GLYBURIDE [Concomitant]
     Dosage: 5 MG

REACTIONS (9)
  - ABDOMINAL PAIN UPPER [None]
  - BACK PAIN [None]
  - DIARRHOEA [None]
  - JOINT SWELLING [None]
  - NECK PAIN [None]
  - PARAESTHESIA [None]
  - PRURITUS [None]
  - SWELLING FACE [None]
  - VOMITING [None]
